FAERS Safety Report 20805303 (Version 1)
Quarter: 2022Q2

REPORT INFORMATION
  Report Type: Other
  Country: CO (occurrence: CO)
  Receive Date: 20220509
  Receipt Date: 20220509
  Transmission Date: 20220721
  Serious: Yes (Hospitalization, Other)
  Sender: FDA-Public Use
  Company Number: CO-002147023-NVSC2022CO063168

PATIENT
  Age: 11 Year
  Sex: Female
  Weight: 50 kg

DRUGS (3)
  1. XOLAIR [Suspect]
     Active Substance: OMALIZUMAB
     Indication: Asthma
     Route: 058
     Dates: start: 202105
  2. MOMETASONE [Concomitant]
     Active Substance: MOMETASONE
     Indication: Asthma
     Dosage: Q24H (STARTED 3 YEARS AGO)
     Route: 048
  3. DESLORATADINE [Concomitant]
     Active Substance: DESLORATADINE
     Indication: Asthma
     Dosage: UNK, Q8H (STARTED 3 YEARS AGO)
     Route: 065

REACTIONS (6)
  - Breast pain [Unknown]
  - Skin burning sensation [Unknown]
  - Breast discharge [Unknown]
  - Asthmatic crisis [Recovering/Resolving]
  - Headache [Recovered/Resolved]
  - Asthenia [Recovered/Resolved]

NARRATIVE: CASE EVENT DATE: 20220315
